FAERS Safety Report 23111066 (Version 1)
Quarter: 2023Q4

REPORT INFORMATION
  Report Type: Spontaneous
  Country: US (occurrence: US)
  Receive Date: 20231026
  Receipt Date: 20231026
  Transmission Date: 20240110
  Serious: No
  Sender: FDA-Public Use
  Company Number: US-JAZZ PHARMACEUTICALS-2023-US-014681

PATIENT
  Age: 14 Year
  Sex: Female
  Weight: 99 kg

DRUGS (1)
  1. DEFITELIO [Suspect]
     Active Substance: DEFIBROTIDE SODIUM
     Indication: Prophylaxis
     Dosage: 25MG/KG/DAY BASED ON WEIGHT
     Route: 042

REACTIONS (1)
  - Off label use [Unknown]
